FAERS Safety Report 6876115-5 (Version None)
Quarter: 2010Q3

REPORT INFORMATION
  Report Type: 
  Country: None (occurrence: None)
  Receive Date: 20100727
  Receipt Date: 20100721
  Transmission Date: 20110219
  Serious: Yes (Hospitalization)
  Sender: FDA-Public Use
  Company Number: A0775450A

PATIENT
  Age: 57 Year
  Sex: Male

DRUGS (1)
  1. AVANDIA [Suspect]
     Route: 048
     Dates: start: 20010101, end: 20070101

REACTIONS (5)
  - AMNESIA [None]
  - BALANCE DISORDER [None]
  - CARDIAC DISORDER [None]
  - GASTRIC DISORDER [None]
  - MUSCULOSKELETAL DISCOMFORT [None]
